FAERS Safety Report 10410280 (Version 1)
Quarter: 2014Q3

REPORT INFORMATION
  Report Type: Spontaneous
  Country: US (occurrence: None)
  Receive Date: 20140825
  Receipt Date: 20140825
  Transmission Date: 20150326
  Serious: Yes (Disabling)
  Sender: FDA-Public Use
  Company Number: None

PATIENT
  Age: 31 Year
  Sex: Female
  Weight: 77.11 kg

DRUGS (1)
  1. LAMOTRIGINE. [Suspect]
     Active Substance: LAMOTRIGINE
     Indication: BIPOLAR DISORDER
     Dosage: 1 PILL TWICE DAILY TAKEN BY MOUTH
     Route: 048
     Dates: start: 20100301, end: 20101026

REACTIONS (6)
  - Impaired work ability [None]
  - Mania [None]
  - Suicidal ideation [None]
  - Product substitution issue [None]
  - Insomnia [None]
  - Depression [None]

NARRATIVE: CASE EVENT DATE: 20100301
